FAERS Safety Report 25691041 (Version 1)
Quarter: 2025Q3

REPORT INFORMATION
  Report Type: Spontaneous
  Country: US (occurrence: None)
  Receive Date: 20250818
  Receipt Date: 20250818
  Transmission Date: 20251021
  Serious: Yes (Other)
  Sender: FDA-CTU
  Company Number: None

PATIENT
  Age: 78 Year
  Sex: Male
  Weight: 77 kg

DRUGS (25)
  1. CARVYKTI [Suspect]
     Active Substance: CILTACABTAGENE AUTOLEUCEL
     Indication: Plasma cell myeloma
     Dates: start: 20250623
  2. ACYCLOVIR (400 MG ORAL TABLET) 1 TAB PO BID [Concomitant]
  3. ALBUTEROL (HFA 90 MCG/INH INHALATION [Concomitant]
  4. ALLOPURINOL (300 MG ORAL TABLET) 1 TAB PO daily [Concomitant]
  5. AMLODIPINE (10 MG ORAL TABLET) 1 TAB PO daily [Concomitant]
  6. ASPIRIN (81 MG ORAL TABLET, CHEWABLE) 1 TAB PO daily [Concomitant]
  7. CARVEDILOL (3.125 MG ORAL TABLET) 1 TAB PO BID [Concomitant]
  8. CHOLECALCIFEROL 125 MCG PO daily [Concomitant]
  9. CYANOCOBALAMIN 5,000 MCG PO daily [Concomitant]
  10. EZETIMIBE 10 MG PO every night [Concomitant]
  11. HYDROXYZINE (25 MG ORAL TABLET) [Concomitant]
  12. LEVOFLOXACIN (500 MG ORAL TABLET) [Concomitant]
  13. LEVOTHYROXINE (88 MCG (0.088 MG) [Concomitant]
  14. LIDOCAINE TOPICAL (4% TOPICAL FILM) [Concomitant]
  15. MELATONIN (3 MG ORAL TABLET) [Concomitant]
  16. MULTIVITAMIN WITH MINERALS (CENTRUM SILVER) 1 TAB PO daily [Concomitant]
  17. NYSTATIN TOPICAL (NYSTATIN 100,000 UNITS/G TOPICAL POWDER) [Concomitant]
  18. PANTOPRAZOLE (40 MG ORAL DELAYED RELEASE TABLET) 1 TAB PO BID [Concomitant]
  19. POLYETHYLENE GLYCOL 17 GM PO BID [Concomitant]
  20. POSACONAZOLE (100 MG ORAL DELAYED RELEASE TABLET) [Concomitant]
  21. PREDNISONE (20 MG ORAL TABLET) [Concomitant]
  22. SERTRALINE (25 MG ORAL TABLET) 1 TAB PO daily [Concomitant]
  23. BACTRIM DS [Concomitant]
     Active Substance: SULFAMETHOXAZOLE\TRIMETHOPRIM
  24. TAMSULOSIN (0.4 MG ORALCAPSULE) [Concomitant]
  25. TRAZODONE (50 MG ORAL TABLET) [Concomitant]

REACTIONS (4)
  - Dysarthria [None]
  - Cranial nerve paralysis [None]
  - T-lymphocyte count increased [None]
  - Protein total increased [None]

NARRATIVE: CASE EVENT DATE: 20250810
